FAERS Safety Report 6102539-X (Version None)
Quarter: 2009Q1

REPORT INFORMATION
  Report Type: 
  Country: None (occurrence: None)
  Receive Date: 20090304
  Receipt Date: 20080807
  Transmission Date: 20090719
  Serious: No
  Sender: FDA-Public Use
  Company Number: A0741560A

PATIENT
  Sex: Male

DRUGS (6)
  1. REQUIP [Suspect]
     Indication: RESTLESS LEGS SYNDROME
     Dosage: 3MG PER DAY
     Route: 048
     Dates: start: 20060101
  2. ULTRAM [Concomitant]
  3. RELAFEN [Concomitant]
  4. FISH OIL [Concomitant]
  5. ASCORBIC ACID [Concomitant]
  6. FLAX SEED [Concomitant]

REACTIONS (3)
  - ALLERGY TO CHEMICALS [None]
  - NAUSEA [None]
  - VOMITING [None]
